FAERS Safety Report 5477761-6 (Version None)
Quarter: 2007Q4

REPORT INFORMATION
  Report Type: 
  Country: None (occurrence: None)
  Receive Date: 20071002
  Receipt Date: 20071002
  Transmission Date: 20080405
  Serious: No
  Sender: FDA-Public Use
  Company Number: None

PATIENT
  Sex: Male
  Weight: 68.0396 kg

DRUGS (1)
  1. METHADONE HCL [Suspect]
     Indication: DRUG ABUSER
     Dosage: 10 MG 3 X''S DAY PO
     Route: 048

REACTIONS (1)
  - OVERDOSE [None]
